FAERS Safety Report 7205628-1 (Version None)
Quarter: 2010Q4

REPORT INFORMATION
  Report Type: 
  Country: None (occurrence: None)
  Receive Date: 20101231
  Receipt Date: 20101222
  Transmission Date: 20110411
  Serious: Yes (Other)
  Sender: FDA-Public Use
  Company Number: FR-PFIZER INC-2010152954

PATIENT
  Age: 36 Year
  Sex: Female

DRUGS (4)
  1. LYRICA [Suspect]
     Indication: NEURALGIA
     Dosage: 150 MG, 1X/DAY
     Dates: start: 20101102, end: 20101101
  2. LYRICA [Suspect]
     Dosage: 150 MG, 2X/DAY
     Dates: start: 20101101, end: 20101119
  3. RIVOTRIL [Concomitant]
     Indication: NEURALGIA
     Dosage: 2 MG, 1X/DAY
     Dates: start: 20101102, end: 20101118
  4. RIVOTRIL [Concomitant]
     Dosage: 1 MG, 1X/DAY
     Dates: start: 20101119, end: 20101126

REACTIONS (2)
  - HEPATITIS [None]
  - MENORRHAGIA [None]
